FAERS Safety Report 19698240 (Version 2)
Quarter: 2021Q3

REPORT INFORMATION
  Report Type: Report from Study
  Country: FR (occurrence: FR)
  Receive Date: 20210812
  Receipt Date: 20210908
  Transmission Date: 20211014
  Serious: Yes (Other)
  Sender: FDA-Public Use
  Company Number: FR-JNJFOC-20210817733

PATIENT
  Age: 22 Year
  Sex: Male
  Weight: 65 kg

DRUGS (2)
  1. REMICADE [Suspect]
     Active Substance: INFLIXIMAB
     Indication: CROHN^S DISEASE
     Dosage: 300 MG, EVERY 8 WEEKS?DRUG START PERIOD: 683  (DAYS)
     Route: 042
     Dates: start: 20180119
  2. REMICADE [Suspect]
     Active Substance: INFLIXIMAB
     Dosage: DRUG START PERIOD: 683  (DAYS)
     Route: 042
     Dates: start: 20190328

REACTIONS (2)
  - Epididymitis [Recovering/Resolving]
  - Epididymitis [Recovered/Resolved]

NARRATIVE: CASE EVENT DATE: 201904
